FAERS Safety Report 24841339 (Version 1)
Quarter: 2025Q1

REPORT INFORMATION
  Report Type: Spontaneous
  Country: US (occurrence: US)
  Receive Date: 20250114
  Receipt Date: 20250114
  Transmission Date: 20250408
  Serious: Yes (Other)
  Sender: NOVARTIS
  Company Number: US-002147023-NVSC2024US248402

PATIENT

DRUGS (2)
  1. KESIMPTA [Suspect]
     Active Substance: OFATUMUMAB
     Indication: Product used for unknown indication
     Route: 065
  2. OCREVUS [Suspect]
     Active Substance: OCRELIZUMAB
     Indication: Product used for unknown indication
     Route: 065

REACTIONS (7)
  - Multiple sclerosis [Unknown]
  - Lymphatic disorder [Unknown]
  - Connective tissue disorder [Unknown]
  - Condition aggravated [Unknown]
  - Adverse food reaction [Unknown]
  - Fatigue [Unknown]
  - Malaise [Unknown]
